FAERS Safety Report 12749041 (Version 2)
Quarter: 2016Q4

REPORT INFORMATION
  Report Type: Spontaneous
  Country: SA (occurrence: IE)
  Receive Date: 20160915
  Receipt Date: 20161019
  Transmission Date: 20170207
  Serious: Yes (Other)
  Sender: FDA-Public Use
  Company Number: SA-SA-2016SA167409

PATIENT
  Age: 40 Year
  Sex: Female
  Weight: 130 kg

DRUGS (1)
  1. CLEXANE [Suspect]
     Active Substance: ENOXAPARIN SODIUM
     Indication: THROMBOSIS
     Route: 058

REACTIONS (5)
  - Erythema [Unknown]
  - Feeling hot [Unknown]
  - Arterial rupture [Unknown]
  - Fatigue [Unknown]
  - Abdominal pain [Unknown]
